FAERS Safety Report 5935176-8 (Version None)
Quarter: 2008Q4

REPORT INFORMATION
  Report Type: 
  Country: None (occurrence: None)
  Receive Date: 20081028
  Receipt Date: 20081016
  Transmission Date: 20090506
  Serious: Yes (Death)
  Sender: FDA-Public Use
  Company Number: 1000001449

PATIENT
  Age: 55 Year
  Sex: Male

DRUGS (6)
  1. CITALOPRAM HYDROBROMIDE [Suspect]
     Indication: DEPRESSION
     Dosage: 20 MG, (20 MG, 1 IN 1 D), ORAL
     Route: 048
     Dates: end: 20080121
  2. METHADONE HCL [Suspect]
     Indication: ABNORMAL BEHAVIOUR
     Dosage: 120 MG 9120 MG, 1 IN 1 D), ORAL
     Route: 048
     Dates: start: 20000101, end: 20080121
  3. METHADONE HCL [Suspect]
     Indication: MENTAL DISORDER
     Dosage: 120 MG 9120 MG, 1 IN 1 D), ORAL
     Route: 048
     Dates: start: 20000101, end: 20080121
  4. RIVOTRIL (TABLETS) [Suspect]
     Indication: EMOTIONAL DISORDER
     Dosage: 4 MG (2 MG, 2 IN 1 D), ORAL
     Route: 048
     Dates: end: 20080121
  5. ENTUMIN (TABLETS) [Suspect]
     Indication: PERSONALITY DISORDER
     Dosage: 40 MG (40 MG, 1 IN 1 D), ORAL
     Route: 048
     Dates: end: 20080121
  6. ANTABUSE [Concomitant]

REACTIONS (1)
  - DEATH [None]
